FAERS Safety Report 15842898 (Version 1)
Quarter: 2019Q1

REPORT INFORMATION
  Report Type: Report from Study
  Country: US (occurrence: US)
  Receive Date: 20190118
  Receipt Date: 20190118
  Transmission Date: 20190417
  Serious: Yes (Other)
  Sender: FDA-Public Use
  Company Number: US-SA-2019SA011714

PATIENT
  Sex: Male

DRUGS (1)
  1. DRONEDARONE [Suspect]
     Active Substance: DRONEDARONE
     Dosage: UNK

REACTIONS (3)
  - Product dose omission [Unknown]
  - Hospitalisation [Unknown]
  - Inability to afford medication [Unknown]
